FAERS Safety Report 4357383-0 (Version None)
Quarter: 2004Q2

REPORT INFORMATION
  Report Type: 
  Country: None (occurrence: None)
  Receive Date: 20040513
  Receipt Date: 20040507
  Transmission Date: 20050107
  Serious: Yes (Other)
  Sender: FDA-Public Use
  Company Number: 200413501US

PATIENT
  Sex: 0

DRUGS (2)
  1. ARAVA [Suspect]
     Dosage: DOSE: UNK
  2. METHOTREXATE [Concomitant]
     Dosage: DOSE: UNK

REACTIONS (1)
  - B-CELL LYMPHOMA [None]
